FAERS Safety Report 13767655 (Version 12)
Quarter: 2018Q4

REPORT INFORMATION
  Report Type: Spontaneous
  Country: ES (occurrence: ES)
  Receive Date: 20170719
  Receipt Date: 20181015
  Transmission Date: 20190204
  Serious: Yes (Other)
  Sender: FDA-Public Use
  Company Number: ES-PFIZER INC-2017262036

PATIENT
  Age: 47 Year
  Sex: Male

DRUGS (9)
  1. LYRICA [Suspect]
     Active Substance: PREGABALIN
     Indication: PROCEDURAL PAIN
     Dosage: 75 MG, 2X/DAY (ONE IN THE MORNING AND ONE IN THE EVENING)
     Route: 048
     Dates: start: 201610, end: 20170702
  2. QUTENZA [Concomitant]
     Active Substance: CAPSAICIN
     Dosage: 3RD PATCH
     Dates: start: 20170703
  3. NOLOTIL /06276702/ [Concomitant]
     Active Substance: METAMIZOLE MAGNESIUM
     Dosage: UNK UNK, AS NEEDED
  4. QUTENZA [Concomitant]
     Active Substance: CAPSAICIN
     Dosage: 2ND PATCH
     Dates: start: 201702
  5. TERBASMIN /00199201/ [Concomitant]
     Dosage: UNK UNK, AS NEEDED
  6. ZALDIAR [Concomitant]
     Active Substance: ACETAMINOPHEN\TRAMADOL HYDROCHLORIDE
     Dosage: UNK UNK, AS NEEDED
  7. QUTENZA [Concomitant]
     Active Substance: CAPSAICIN
     Indication: PROCEDURAL PAIN
     Dosage: 1ST PATCH
     Dates: start: 201610
  8. LYRICA [Suspect]
     Active Substance: PREGABALIN
     Indication: HERNIA
  9. STRATTERA [Suspect]
     Active Substance: ATOMOXETINE HYDROCHLORIDE
     Indication: PSYCHOMOTOR HYPERACTIVITY
     Dosage: 1 DF, 1X/DAY
     Dates: start: 2013

REACTIONS (7)
  - Suicidal ideation [Unknown]
  - Vision blurred [Unknown]
  - Visual field defect [Not Recovered/Not Resolved]
  - Condition aggravated [Not Recovered/Not Resolved]
  - Blindness [Unknown]
  - Dizziness [Unknown]
  - Leukocytosis [Unknown]

NARRATIVE: CASE EVENT DATE: 2017
